FAERS Safety Report 8988057 (Version 1)
Quarter: 2012Q4

REPORT INFORMATION
  Report Type: 
  Country: DE (occurrence: DE)
  Receive Date: 20121227
  Receipt Date: 20121227
  Transmission Date: 20130627
  Serious: Yes (Other)
  Sender: FDA-Public Use
  Company Number: DE-UCBSA-070180

PATIENT
  Sex: Male

DRUGS (2)
  1. NEUPRO [Suspect]
     Dosage: DOSE STRENGTH: 2 MG
  2. NEUPRO [Suspect]
     Dosage: STRENGTH: 4 MG

REACTIONS (5)
  - Skin lesion [Recovering/Resolving]
  - Skin irritation [Recovering/Resolving]
  - Inflammation [Recovering/Resolving]
  - Erythema [Recovering/Resolving]
  - Drug intolerance [Unknown]
